FAERS Safety Report 22668609 (Version 3)
Quarter: 2023Q4

REPORT INFORMATION
  Report Type: Report from Study
  Country: US (occurrence: US)
  Receive Date: 20230704
  Receipt Date: 20231204
  Transmission Date: 20240110
  Serious: Yes (Hospitalization, Other)
  Sender: FDA-Public Use
  Company Number: US-ABBVIE-5310037

PATIENT
  Sex: Male

DRUGS (2)
  1. IMBRUVICA [Suspect]
     Active Substance: IBRUTINIB
     Indication: Chronic lymphocytic leukaemia
     Route: 048
     Dates: end: 202310
  2. IMBRUVICA [Suspect]
     Active Substance: IBRUTINIB
     Indication: Chronic lymphocytic leukaemia
     Dosage: START DATE: 2023
     Route: 048

REACTIONS (13)
  - Gait inability [Unknown]
  - Blood sodium decreased [Unknown]
  - Dizziness [Unknown]
  - Asthenia [Unknown]
  - Diarrhoea [Unknown]
  - Blood potassium decreased [Unknown]
  - Chronic lymphocytic leukaemia [Unknown]
  - Unevaluable event [Unknown]
  - Fall [Unknown]
  - Foot fracture [Unknown]
  - Gout [Unknown]
  - Blood electrolytes abnormal [Unknown]
  - Peripheral swelling [Unknown]
